FAERS Safety Report 4788422-0 (Version None)
Quarter: 2005Q3

REPORT INFORMATION
  Report Type: 
  Country: None (occurrence: None)
  Receive Date: 20050921
  Receipt Date: 20050510
  Transmission Date: 20060218
  Serious: Yes (Hospitalization)
  Sender: FDA-Public Use
  Company Number: BDI-007156

PATIENT
  Age: 78 Year
  Sex: Female
  Weight: 63 kg

DRUGS (1)
  1. RENOGRAFIN-60 [Suspect]
     Indication: PAIN
     Dosage: IT
     Route: 037
     Dates: start: 20050504, end: 20050504

REACTIONS (1)
  - DRUG ADMINISTRATION ERROR [None]
